FAERS Safety Report 7166695-7 (Version None)
Quarter: 2010Q4

REPORT INFORMATION
  Report Type: 
  Country: None (occurrence: None)
  Receive Date: 20101203
  Receipt Date: 20101117
  Transmission Date: 20110411
  Serious: Yes (Death, Other)
  Sender: FDA-Public Use
  Company Number: 2010004689

PATIENT
  Age: 68 Year
  Sex: Male

DRUGS (3)
  1. TARCEVA [Suspect]
     Indication: LUNG NEOPLASM MALIGNANT
     Dosage: 150 MG, QD, ORAL
     Route: 048
     Dates: start: 20101002
  2. CHEMOTHERAPY [Suspect]
  3. TAXOTERE [Concomitant]

REACTIONS (8)
  - ATRIAL FIBRILLATION [None]
  - DEPRESSION [None]
  - FATIGUE [None]
  - LUNG ADENOCARCINOMA METASTATIC [None]
  - MALIGNANT NEOPLASM PROGRESSION [None]
  - NAUSEA [None]
  - RASH [None]
  - RHEUMATOID ARTHRITIS [None]
